FAERS Safety Report 8454726-3 (Version None)
Quarter: 2012Q2

REPORT INFORMATION
  Report Type: 
  Country: None (occurrence: None)
  Receive Date: 20120614
  Receipt Date: 20120530
  Transmission Date: 20120825
  Serious: Yes (Other)
  Sender: FDA-Public Use
  Company Number: JPI-P-021739

PATIENT
  Age: 51 Year
  Sex: Female
  Weight: 103.4201 kg

DRUGS (9)
  1. NAPROXEN SODIUM [Suspect]
     Indication: ARTHRITIS
     Dosage: ORAL
     Route: 048
  2. ALISKIREN AND VALSARTAN [Suspect]
     Indication: HYPERTENSION
     Dosage: ORAL
     Route: 048
  3. METFORMIN HCL [Suspect]
     Indication: DIABETES MELLITUS
     Dosage: UNKNOWN
     Dates: start: 20110101
  4. SITALGLIPTIN [Concomitant]
  5. XYREM [Suspect]
     Indication: SOMNOLENCE
     Dosage: 4.5 GM (2.25 GM, 2 IN 1 D), ORAL, (UNSPECIFIED DOSE CHANGE), ORAL, 9 GM (4.5 GM, 2 IN 1 D), ORAL
     Route: 048
     Dates: start: 20120229
  6. XYREM [Suspect]
     Indication: NARCOLEPSY
     Dosage: 4.5 GM (2.25 GM, 2 IN 1 D), ORAL, (UNSPECIFIED DOSE CHANGE), ORAL, 9 GM (4.5 GM, 2 IN 1 D), ORAL
     Route: 048
     Dates: start: 20120229
  7. XYREM [Suspect]
     Indication: SOMNOLENCE
     Dosage: 4.5 GM (2.25 GM, 2 IN 1 D), ORAL, (UNSPECIFIED DOSE CHANGE), ORAL, 9 GM (4.5 GM, 2 IN 1 D), ORAL
     Route: 048
     Dates: start: 20100204
  8. XYREM [Suspect]
     Indication: NARCOLEPSY
     Dosage: 4.5 GM (2.25 GM, 2 IN 1 D), ORAL, (UNSPECIFIED DOSE CHANGE), ORAL, 9 GM (4.5 GM, 2 IN 1 D), ORAL
     Route: 048
     Dates: start: 20100204
  9. SOTALOL HYDROCHLORIDE [Concomitant]

REACTIONS (13)
  - DYSPNOEA [None]
  - CONDITION AGGRAVATED [None]
  - DIABETES MELLITUS [None]
  - HYPERTENSION [None]
  - GAIT DISTURBANCE [None]
  - INSOMNIA [None]
  - BACK PAIN [None]
  - BLOOD CREATINE INCREASED [None]
  - ARTHRALGIA [None]
  - MIGRAINE [None]
  - NAUSEA [None]
  - CHEST PAIN [None]
  - PARANASAL SINUS HYPERSECRETION [None]
